FAERS Safety Report 25471853 (Version 1)
Quarter: 2025Q2

REPORT INFORMATION
  Report Type: Spontaneous
  Country: US (occurrence: US)
  Receive Date: 20250624
  Receipt Date: 20250624
  Transmission Date: 20250716
  Serious: Yes (Hospitalization, Other)
  Sender: NOVO NORDISK
  Company Number: US-NOVOPROD-1460243

PATIENT
  Age: 54 Year
  Sex: Female

DRUGS (3)
  1. INSULIN ASPART [Suspect]
     Active Substance: INSULIN ASPART
     Indication: Type 2 diabetes mellitus
     Dates: start: 2018
  2. INSULIN ASPART [Suspect]
     Active Substance: INSULIN ASPART
     Dates: start: 2024
  3. LEVEMIR [Suspect]
     Active Substance: INSULIN DETEMIR
     Indication: Type 2 diabetes mellitus
     Dates: start: 2018

REACTIONS (10)
  - Urinary tract infection [Recovered/Resolved]
  - Cataract [Recovered/Resolved]
  - Cardiac pacemaker replacement [Unknown]
  - Cerebrovascular accident [Recovered/Resolved]
  - Staphylococcal sepsis [Unknown]
  - Chronic kidney disease [Not Recovered/Not Resolved]
  - Endocarditis [Unknown]
  - Implantable defibrillator insertion [Unknown]
  - Cardiac resynchronisation therapy [Unknown]
  - Abnormal loss of weight [Unknown]

NARRATIVE: CASE EVENT DATE: 20220101
